FAERS Safety Report 7721987-5 (Version None)
Quarter: 2011Q3

REPORT INFORMATION
  Report Type: 
  Country: None (occurrence: None)
  Receive Date: 20110831
  Receipt Date: 20110824
  Transmission Date: 20111222
  Serious: Yes (Hospitalization, Other)
  Sender: FDA-Public Use
  Company Number: US-PFIZER INC-2011197855

PATIENT
  Sex: Male

DRUGS (1)
  1. VFEND [Suspect]
     Indication: ANTIFUNGAL PROPHYLAXIS
     Dosage: 250 MG, 2X/DAY
     Dates: start: 20110805, end: 20110816

REACTIONS (2)
  - PARANOIA [None]
  - HALLUCINATION [None]
